FAERS Safety Report 10595910 (Version 1)
Quarter: 2014Q4

REPORT INFORMATION
  Report Type: Spontaneous
  Country: NL (occurrence: NL)
  Receive Date: 20141120
  Receipt Date: 20141120
  Transmission Date: 20150529
  Serious: Yes (Other)
  Sender: FDA-Public Use
  Company Number: NL-TEVA-524045ISR

PATIENT
  Age: 6 Decade
  Sex: Female

DRUGS (5)
  1. ALPRAZOLAM. [Suspect]
     Active Substance: ALPRAZOLAM
     Indication: ANXIETY
     Route: 065
  2. LOSARTAN [Concomitant]
     Active Substance: LOSARTAN
     Route: 065
  3. CICLESONIDE [Concomitant]
     Active Substance: CICLESONIDE
     Route: 065
  4. FLUVOXAMINE [Concomitant]
     Active Substance: FLUVOXAMINE
     Indication: ANXIETY
     Route: 065
  5. FORMOTEROL [Concomitant]
     Active Substance: FORMOTEROL
     Route: 065

REACTIONS (3)
  - Anxiety [Recovered/Resolved]
  - Amnesia [Not Recovered/Not Resolved]
  - Suicidal ideation [Recovered/Resolved]
